FAERS Safety Report 9686394 (Version 2)
Quarter: 2014Q1

REPORT INFORMATION
  Report Type: Report from Study
  Country: DE (occurrence: TR)
  Receive Date: 20131113
  Receipt Date: 20140109
  Transmission Date: 20141002
  Serious: Yes (Death)
  Sender: FDA-Public Use
  Company Number: DE-ACTELION-A-US2013-91142

PATIENT
  Age: 67 Year
  Sex: Female
  Weight: 49.89 kg

DRUGS (1)
  1. VENTAVIS [Suspect]
     Indication: PULMONARY ARTERIAL HYPERTENSION
     Dosage: 9/DAY
     Route: 055
     Dates: start: 20110324, end: 20131106

REACTIONS (1)
  - Respiratory failure [Fatal]
